FAERS Safety Report 20475076 (Version 1)
Quarter: 2022Q1

REPORT INFORMATION
  Report Type: Spontaneous
  Country: US (occurrence: None)
  Receive Date: 20220214
  Receipt Date: 20220214
  Transmission Date: 20220424
  Serious: Yes (Other)
  Sender: FDA-Public Use
  Company Number: None

PATIENT
  Age: 11 Year
  Sex: Female
  Weight: 56.7 kg

DRUGS (1)
  1. TRIPTODUR [Suspect]
     Active Substance: TRIPTORELIN
     Indication: Precocious puberty
     Dosage: OTHER FREQUENCY : EVERY 6 MOS;?
     Route: 030
     Dates: start: 20210902

REACTIONS (1)
  - Seizure like phenomena [None]

NARRATIVE: CASE EVENT DATE: 20211202
